FAERS Safety Report 10689073 (Version 1)
Quarter: 2015Q1

REPORT INFORMATION
  Report Type: Spontaneous
  Country: US (occurrence: US)
  Receive Date: 20150104
  Receipt Date: 20150104
  Transmission Date: 20150720
  Serious: No
  Sender: FDA-Public Use
  Company Number: US-GLAXOSMITHKLINE-US2014GSK045030

PATIENT
  Sex: Male

DRUGS (3)
  1. NASAL SPRAY [Concomitant]
     Active Substance: UNSPECIFIED INGREDIENT
     Indication: PRODUCT USED FOR UNKNOWN INDICATION
  2. FLONASE [Suspect]
     Active Substance: FLUTICASONE PROPIONATE
     Indication: SINUSITIS
     Route: 055
  3. NETI POT (SALINE NASAL RINSE) [Concomitant]

REACTIONS (4)
  - Tooth disorder [Unknown]
  - Sensory disturbance [Unknown]
  - Nasal congestion [Unknown]
  - Multiple allergies [Unknown]

NARRATIVE: CASE EVENT DATE: 20140929
